FAERS Safety Report 16929848 (Version 1)
Quarter: 2019Q4

REPORT INFORMATION
  Report Type: Spontaneous
  Country: US (occurrence: US)
  Receive Date: 20191017
  Receipt Date: 20191017
  Transmission Date: 20200122
  Serious: Yes (Hospitalization, Other)
  Sender: FDA-Public Use
  Company Number: US-AMGEN-USASP2019170176

PATIENT
  Age: 53 Year
  Sex: Female

DRUGS (1)
  1. REUSABLE AUTOINJECTOR [Suspect]
     Active Substance: DEVICE
     Indication: RHEUMATOID ARTHRITIS
     Dosage: 50 MILLIGRAM, QWK
     Route: 065
     Dates: start: 2018

REACTIONS (2)
  - Dialysis [Recovered/Resolved]
  - Graft haemorrhage [Recovered/Resolved]

NARRATIVE: CASE EVENT DATE: 20191009
